FAERS Safety Report 7704303-4 (Version None)
Quarter: 2011Q3

REPORT INFORMATION
  Report Type: 
  Country: None (occurrence: None)
  Receive Date: 20110823
  Receipt Date: 20110818
  Transmission Date: 20111222
  Serious: Yes (Life-Threatening, Hospitalization)
  Sender: FDA-Public Use
  Company Number: PHHY2011FR74290

PATIENT
  Age: 40 Year
  Sex: Female

DRUGS (4)
  1. ZONEGRAN [Suspect]
     Indication: EPILEPSY
     Dosage: 500 MG DAILY
  2. PHENOBARBITAL TAB [Suspect]
     Indication: EPILEPSY
     Dosage: 150 MG, DAILY
  3. VIMPAT [Suspect]
     Indication: EPILEPSY
     Dosage: 300 MG, DAILY
  4. TEGRETOL [Suspect]
     Indication: EPILEPSY
     Dosage: 800 MG, DAILY

REACTIONS (7)
  - MEAN CELL VOLUME INCREASED [None]
  - ANAEMIA MACROCYTIC [None]
  - GAMMA-GLUTAMYLTRANSFERASE INCREASED [None]
  - LEUKOPENIA [None]
  - BLOOD ALKALINE PHOSPHATASE INCREASED [None]
  - NEUTROPENIA [None]
  - HAEMOGLOBIN DECREASED [None]
